FAERS Safety Report 15391760 (Version 1)
Quarter: 2018Q3

REPORT INFORMATION
  Report Type: Spontaneous
  Country: US (occurrence: US)
  Receive Date: 20180910
  Receipt Date: 20180910
  Transmission Date: 20181010
  Serious: Yes (Hospitalization)
  Sender: FDA-Public Use
  Company Number: None

PATIENT
  Age: 57 Year
  Sex: Male
  Weight: 63.05 kg

DRUGS (1)
  1. GLECAPREVIR/PIBRENTASVIR [Suspect]
     Active Substance: GLECAPREVIR\PIBRENTASVIR
     Indication: HEPATITIS C
     Dosage: 100/40 MG
     Route: 048
     Dates: start: 20180623, end: 20180829

REACTIONS (9)
  - Constipation [None]
  - Chest pain [None]
  - Hypertension [None]
  - Pancreatitis acute [None]
  - Nausea [None]
  - Vomiting [None]
  - Tachycardia [None]
  - Abdominal pain [None]
  - Hyperglycaemia [None]

NARRATIVE: CASE EVENT DATE: 20180829
